FAERS Safety Report 5522279-5 (Version None)
Quarter: 2007Q4

REPORT INFORMATION
  Report Type: 
  Country: None (occurrence: None)
  Receive Date: 20071120
  Receipt Date: 20071108
  Transmission Date: 20080405
  Serious: Yes (Other)
  Sender: FDA-Public Use
  Company Number: US-ELI_LILLY_AND_COMPANY-US200711002005

PATIENT
  Sex: Female

DRUGS (4)
  1. FORTEO [Suspect]
     Dates: start: 20070101, end: 20070101
  2. FORTEO [Suspect]
     Dates: start: 20070601
  3. CALCIUM [Concomitant]
  4. VITAMINS NOS [Concomitant]

REACTIONS (4)
  - BLOOD CALCIUM INCREASED [None]
  - CONSTIPATION [None]
  - NAUSEA [None]
  - PARATHYROID DISORDER [None]
